FAERS Safety Report 6656307-0 (Version None)
Quarter: 2010Q1

REPORT INFORMATION
  Report Type: 
  Country: None (occurrence: None)
  Receive Date: 20100329
  Receipt Date: 20100326
  Transmission Date: 20100710
  Serious: Yes (Life-Threatening, Hospitalization)
  Sender: FDA-Public Use
  Company Number: GXKR2010DE03509

PATIENT
  Sex: Male

DRUGS (1)
  1. AZITHROMYCIN [Suspect]
     Dosage: 500 MG, QD
     Route: 048

REACTIONS (5)
  - DIARRHOEA [None]
  - GASTROINTESTINAL PAIN [None]
  - ILEUS [None]
  - REHABILITATION THERAPY [None]
  - SURGERY [None]
